FAERS Safety Report 6841513-2 (Version None)
Quarter: 2010Q3

REPORT INFORMATION
  Report Type: 
  Country: None (occurrence: None)
  Receive Date: 20100714
  Receipt Date: 20070808
  Transmission Date: 20110219
  Serious: No
  Sender: FDA-Public Use
  Company Number: US-PFIZER INC-2007055763

PATIENT
  Sex: Male
  Weight: 79.5 kg

DRUGS (3)
  1. CHANTIX [Suspect]
     Indication: SMOKING CESSATION THERAPY
     Dates: start: 20070401, end: 20070622
  2. PREDNISONE [Suspect]
     Indication: ALLERGIC PHARYNGITIS
     Dates: start: 20070412, end: 20070417
  3. VITAMINS [Concomitant]

REACTIONS (5)
  - BACK PAIN [None]
  - MUSCULOSKELETAL PAIN [None]
  - MUSCULOSKELETAL STIFFNESS [None]
  - MYALGIA [None]
  - NECK PAIN [None]
